FAERS Safety Report 15237850 (Version 6)
Quarter: 2018Q4

REPORT INFORMATION
  Report Type: Report from Study
  Country: JP (occurrence: JP)
  Receive Date: 20180803
  Receipt Date: 20181124
  Transmission Date: 20190204
  Serious: Yes (Hospitalization)
  Sender: FDA-Public Use
  Company Number: JP-ROCHE-2163957

PATIENT
  Age: 87 Year
  Sex: Male

DRUGS (3)
  1. ATEZOLIZUMAB. [Suspect]
     Active Substance: ATEZOLIZUMAB
     Indication: LUNG ADENOCARCINOMA
     Dosage: MOST RERCENT DOSE IN 29/JUL/2018
     Route: 041
     Dates: start: 20180615
  2. ATEZOLIZUMAB. [Suspect]
     Active Substance: ATEZOLIZUMAB
     Dosage: MOST RERCENT DOSE IN 14/JUN/2018
     Route: 041
     Dates: start: 20180614
  3. ATEZOLIZUMAB. [Suspect]
     Active Substance: ATEZOLIZUMAB
     Dosage: MOST RERCENT DOSE IN 09/JUL/2018
     Route: 041
     Dates: start: 20180709

REACTIONS (1)
  - Haemorrhagic cerebral infarction [Recovering/Resolving]
